FAERS Safety Report 16069946 (Version 2)
Quarter: 2019Q2

REPORT INFORMATION
  Report Type: Spontaneous
  Country: US (occurrence: US)
  Receive Date: 20190314
  Receipt Date: 20190403
  Transmission Date: 20190711
  Serious: No
  Sender: FDA-Public Use
  Company Number: US-009507513-1903USA003939

PATIENT
  Age: 75 Year
  Sex: Female
  Weight: 46.72 kg

DRUGS (1)
  1. FOSAMAX [Suspect]
     Active Substance: ALENDRONATE SODIUM
     Indication: OSTEOPOROSIS
     Dosage: UNK

REACTIONS (4)
  - Drug ineffective [Unknown]
  - Pain in jaw [Unknown]
  - Osteoporosis [Unknown]
  - Bone disorder [Unknown]
